FAERS Safety Report 5157287-X (Version None)
Quarter: 2006Q4

REPORT INFORMATION
  Report Type: 
  Country: None (occurrence: None)
  Receive Date: 20061127
  Receipt Date: 20061106
  Transmission Date: 20070319
  Serious: Yes (Other)
  Sender: FDA-Public Use
  Company Number: GB-BRISTOL-MYERS SQUIBB COMPANY-13567631

PATIENT
  Sex: Female

DRUGS (3)
  1. METHOTREXATE [Suspect]
     Route: 061
  2. METHOTREXATE [Suspect]
     Route: 061
  3. HYDROCORTISONE [Concomitant]
     Route: 061

REACTIONS (2)
  - EYE INFECTION [None]
  - HYPERSENSITIVITY [None]
